FAERS Safety Report 18152631 (Version 3)
Quarter: 2021Q3

REPORT INFORMATION
  Report Type: Spontaneous
  Country: JP (occurrence: JP)
  Receive Date: 20200814
  Receipt Date: 20210909
  Transmission Date: 20211014
  Serious: Yes (Hospitalization)
  Sender: FDA-Public Use
  Company Number: JP-ELI_LILLY_AND_COMPANY-JP202008005250

PATIENT
  Age: 7 Year
  Sex: Female
  Weight: 18.5 kg

DRUGS (12)
  1. ENALAPRIL MALEATE. [Concomitant]
     Active Substance: ENALAPRIL MALEATE
     Indication: PRODUCT USED FOR UNKNOWN INDICATION
     Dosage: 3.75 MG, DAILY
  2. FUROSEMIDE. [Concomitant]
     Active Substance: FUROSEMIDE
     Indication: PRODUCT USED FOR UNKNOWN INDICATION
     Dosage: 45 MG, DAILY
  3. WARFARIN POTASSIUM [Concomitant]
     Active Substance: WARFARIN POTASSIUM
     Indication: PRODUCT USED FOR UNKNOWN INDICATION
     Dosage: 2.5 MG, DAILY
  4. UPTRAVI [Suspect]
     Active Substance: SELEXIPAG
     Indication: PULMONARY ARTERIAL HYPERTENSION
     Dosage: 0.14 MG, DAILY
     Route: 048
     Dates: start: 20190612
  5. UPTRAVI [Suspect]
     Active Substance: SELEXIPAG
     Dosage: 0.07 MG, BID
     Route: 048
     Dates: start: 20190712
  6. ALDACTONE A [Concomitant]
     Active Substance: SPIRONOLACTONE
     Indication: PRODUCT USED FOR UNKNOWN INDICATION
     Dosage: 45 MG
  7. ASPIRIN [ACETYLSALICYLIC ACID] [Concomitant]
     Active Substance: ASPIRIN
     Indication: PRODUCT USED FOR UNKNOWN INDICATION
     Dosage: 90 MG, UNKNOWN
  8. PLETAAL [Concomitant]
     Active Substance: CILOSTAZOL
     Indication: SINOATRIAL BLOCK
     Dosage: 80 MG, DAILY
     Dates: start: 20200327
  9. OPSUMIT [Concomitant]
     Active Substance: MACITENTAN
     Indication: PULMONARY ARTERIAL HYPERTENSION
     Dosage: 3.2 MG, DAILY
  10. FERROMIA [Concomitant]
     Active Substance: SODIUM FERROUS CITRATE
     Indication: PRODUCT USED FOR UNKNOWN INDICATION
     Dosage: 50 MG, DAILY
     Dates: start: 20190927
  11. INCREMIN [FERRIC PYROPHOSPHATE] [Concomitant]
     Active Substance: FERRIC PYROPHOSPHATE
     Indication: PRODUCT USED FOR UNKNOWN INDICATION
     Dosage: 15 ML, DAILY
     Dates: end: 20190926
  12. ADCIRCA [Suspect]
     Active Substance: TADALAFIL
     Indication: PULMONARY ARTERIAL HYPERTENSION
     Dosage: 20 MG, DAILY
     Route: 065

REACTIONS (7)
  - Arterial disorder [Recovered/Resolved]
  - Iron deficiency anaemia [Recovering/Resolving]
  - Upper respiratory tract inflammation [Recovered/Resolved]
  - Off label use [Unknown]
  - Upper respiratory tract inflammation [Recovered/Resolved]
  - Hypoproteinaemia [Recovering/Resolving]
  - Upper respiratory tract inflammation [Recovered/Resolved]

NARRATIVE: CASE EVENT DATE: 20190712
